FAERS Safety Report 19130657 (Version 1)
Quarter: 2021Q2

REPORT INFORMATION
  Report Type: Spontaneous
  Country: US (occurrence: US)
  Receive Date: 20210414
  Receipt Date: 20210414
  Transmission Date: 20210717
  Serious: No
  Sender: FDA-Public Use
  Company Number: US-ORGANON-O2103USA002883

PATIENT
  Age: 16 Year
  Sex: Female

DRUGS (1)
  1. NEXPLANON [Suspect]
     Active Substance: ETONOGESTREL
     Dosage: 1 IMPLANT IN LEFT ARM (ONE EVERY THREE YEARS)
     Route: 059
     Dates: start: 20210317

REACTIONS (6)
  - Implant site pruritus [Unknown]
  - Implant site vesicles [Unknown]
  - Implant site discolouration [Unknown]
  - Implant site erythema [Unknown]
  - Implant site rash [Unknown]
  - Hypersensitivity [Unknown]

NARRATIVE: CASE EVENT DATE: 202103
